FAERS Safety Report 8230875-X (Version None)
Quarter: 2012Q1

REPORT INFORMATION
  Report Type: 
  Country: None (occurrence: None)
  Receive Date: 20120323
  Receipt Date: 20120313
  Transmission Date: 20120608
  Serious: Yes (Other)
  Sender: FDA-Public Use
  Company Number: GB-BRISTOL-MYERS SQUIBB COMPANY-16440935

PATIENT
  Age: 75 Year
  Sex: Male

DRUGS (12)
  1. FORMOTEROL FUMARATE [Suspect]
  2. FORMOTEROL FUMARATE [Suspect]
     Route: 055
  3. PREDNISOLONE [Suspect]
  4. CARBOCISTEINE [Concomitant]
  5. FUROSEMIDE [Suspect]
  6. METFORMIN HCL [Suspect]
     Route: 048
  7. ATORVASTATIN [Suspect]
  8. ALBUTEROL [Suspect]
  9. WARFARIN SODIUM [Suspect]
  10. VERAPAMIL [Suspect]
  11. RAMIPRIL [Suspect]
  12. CYSTEINE HYDROCHLORIDE [Suspect]

REACTIONS (1)
  - HALLUCINATION [None]
